FAERS Safety Report 19816805 (Version 1)
Quarter: 2021Q3

REPORT INFORMATION
  Report Type: Spontaneous
  Country: JP (occurrence: JP)
  Receive Date: 20210910
  Receipt Date: 20210910
  Transmission Date: 20211014
  Serious: Yes (Other)
  Sender: FDA-Public Use
  Company Number: JP-ALLERGAN-2126888US

PATIENT
  Sex: Male
  Weight: 60 kg

DRUGS (10)
  1. ARIPIPRAZOLE. [Suspect]
     Active Substance: ARIPIPRAZOLE
     Indication: PRODUCT USED FOR UNKNOWN INDICATION
     Dosage: 6 MG, QD
     Route: 065
     Dates: end: 2021
  2. SELENICA?R [Suspect]
     Active Substance: VALPROATE SODIUM
     Indication: DEPRESSIVE SYMPTOM
  3. BELSOMRA [Concomitant]
     Active Substance: SUVOREXANT
     Indication: DEPRESSIVE SYMPTOM
     Dosage: 20 MG, QD
     Route: 048
     Dates: start: 20200529
  4. LUNESTA [Concomitant]
     Active Substance: ESZOPICLONE
     Indication: INSOMNIA
     Dosage: 1 MG, QD
     Route: 048
     Dates: start: 20200604
  5. ESCITALOPRAM OXALATE ? BP [Suspect]
     Active Substance: ESCITALOPRAM OXALATE
     Indication: DEPRESSIVE SYMPTOM
     Dosage: 20 MG, QD
     Route: 048
     Dates: end: 20210325
  6. SELENICA?R [Suspect]
     Active Substance: VALPROATE SODIUM
     Indication: COMPULSIONS
     Dosage: 200 MG, Q12H
     Route: 048
     Dates: start: 20201208, end: 20210317
  7. ABILIFY [Suspect]
     Active Substance: ARIPIPRAZOLE
     Indication: COMPULSIONS
     Dosage: 12 MG, QD
     Route: 048
     Dates: start: 20210119, end: 20210317
  8. ABILIFY [Suspect]
     Active Substance: ARIPIPRAZOLE
     Indication: DEPRESSIVE SYMPTOM
     Dosage: 3 MG, QD
     Route: 048
     Dates: start: 20210119, end: 20210317
  9. ESCITALOPRAM OXALATE ? BP [Suspect]
     Active Substance: ESCITALOPRAM OXALATE
     Indication: COMPULSIONS
     Dosage: 10 MG, QD
     Route: 048
     Dates: start: 20210105, end: 2021
  10. SENNOSIDE [SENNOSIDE A+B] [Concomitant]
     Active Substance: SENNOSIDES A AND B
     Indication: CONSTIPATION
     Dosage: 24 MG, QD
     Route: 048
     Dates: start: 202005

REACTIONS (9)
  - Parkinsonian gait [Recovered/Resolved]
  - Serotonin syndrome [Recovered/Resolved]
  - Hyperhidrosis [Unknown]
  - Blood creatine phosphokinase increased [Recovered/Resolved]
  - Trismus [Recovered/Resolved]
  - Muscle rigidity [Recovered/Resolved]
  - Movement disorder [Recovered/Resolved]
  - Off label use [Unknown]
  - Tremor [Recovered/Resolved]

NARRATIVE: CASE EVENT DATE: 20210317
